FAERS Safety Report 14974518 (Version 6)
Quarter: 2018Q4

REPORT INFORMATION
  Report Type: Spontaneous
  Country: CA (occurrence: CA)
  Receive Date: 20180605
  Receipt Date: 20181123
  Transmission Date: 20190204
  Serious: Yes (Other)
  Sender: FDA-Public Use
  Company Number: CA-CELLTRION INC.-2018CA018325

PATIENT

DRUGS (10)
  1. INFLECTRA [Suspect]
     Active Substance: INFLIXIMAB-DYYB
     Dosage: 400 MG CYCLIC /Q 0, 2, 6,WEEKS, THEN EVERY 8 WEEKS
     Route: 042
     Dates: start: 20180329
  2. INFLECTRA [Suspect]
     Active Substance: INFLIXIMAB-DYYB
     Dosage: 400 MG  CYCLIC /Q 0, 2, 6,WEEKS, THEN EVERY 8 WEEKS
     Route: 042
     Dates: start: 20180914
  3. INFLECTRA [Suspect]
     Active Substance: INFLIXIMAB-DYYB
     Dosage: 400 MG CYCLIC  /Q 0, 2, 6,WEEKS, THEN EVERY 8 WEEKS
     Route: 042
     Dates: start: 20180223
  4. INFLECTRA [Suspect]
     Active Substance: INFLIXIMAB-DYYB
     Dosage: 400 MG  CYCLIC /Q 0, 2, 6,WEEKS, THEN EVERY 8 WEEKS
     Route: 042
     Dates: start: 20181109
  5. INFLECTRA [Suspect]
     Active Substance: INFLIXIMAB-DYYB
     Dosage: 400 MG  CYCLIC /Q 0, 2, 6,WEEKS, THEN EVERY 8 WEEKS
     Route: 042
     Dates: start: 20180525
  6. CALCIUM                            /00060701/ [Concomitant]
     Active Substance: CALCIUM
     Dosage: UNK
  7. INFLECTRA [Suspect]
     Active Substance: INFLIXIMAB-DYYB
     Dosage: 400 MG  CYCLIC /Q 0, 2, 6,WEEKS, THEN EVERY 8 WEEKS
     Route: 042
     Dates: start: 20180720
  8. INFLECTRA [Suspect]
     Active Substance: INFLIXIMAB-DYYB
     Indication: CROHN^S DISEASE
     Dosage: 400 MG /Q 0, 2, 6 WEEKS,THEN EVERY 8 WEEKS
     Route: 042
     Dates: start: 20180209
  9. PREDNISONE. [Concomitant]
     Active Substance: PREDNISONE
     Dosage: UNK
     Dates: start: 20180109
  10. ALESSE 28 [Concomitant]
     Active Substance: ETHINYL ESTRADIOL\LEVONORGESTREL
     Dosage: UNK

REACTIONS (14)
  - Blood pressure increased [Unknown]
  - Arthralgia [Unknown]
  - Incorrect dose administered [Unknown]
  - Infusion related reaction [Recovered/Resolved]
  - Pain [Unknown]
  - Blood pressure fluctuation [Unknown]
  - Aphthous ulcer [Not Recovered/Not Resolved]
  - Pruritus [Unknown]
  - Dry throat [Unknown]
  - Weight increased [Unknown]
  - Tooth abscess [Unknown]
  - Acne [Unknown]
  - Pharyngeal paraesthesia [Unknown]
  - Alopecia [Unknown]

NARRATIVE: CASE EVENT DATE: 20180209
